FAERS Safety Report 6128280-5 (Version None)
Quarter: 2009Q1

REPORT INFORMATION
  Report Type: 
  Country: None (occurrence: None)
  Receive Date: 20090319
  Receipt Date: 20090212
  Transmission Date: 20090719
  Serious: Yes (Death, Hospitalization)
  Sender: FDA-Public Use
  Company Number: 216897

PATIENT
  Age: 39 Year
  Sex: Female

DRUGS (3)
  1. LEUCOVORIN CALCIUM [Suspect]
     Indication: GASTRIC CANCER
  2. IRINOTECAN HCL [Suspect]
     Indication: GASTRIC CANCER
  3. FLUOROURACIL INJ [Suspect]
     Indication: GASTRIC CANCER

REACTIONS (7)
  - DRUG TOXICITY [None]
  - FEBRILE NEUTROPENIA [None]
  - HAEMATOCRIT DECREASED [None]
  - HAEMORRHAGE [None]
  - MUCOSAL INFLAMMATION [None]
  - RED BLOOD CELL COUNT DECREASED [None]
  - THROMBOCYTOPENIA [None]
